FAERS Safety Report 7726130-4 (Version None)
Quarter: 2011Q3

REPORT INFORMATION
  Report Type: 
  Country: None (occurrence: None)
  Receive Date: 20110902
  Receipt Date: 20110825
  Transmission Date: 20111222
  Serious: Yes (Hospitalization)
  Sender: FDA-Public Use
  Company Number: PHHY2011JP69744

PATIENT
  Age: 60 Year
  Sex: Female

DRUGS (2)
  1. PACLITAXEL [Suspect]
     Indication: OVARIAN CANCER
     Dosage: 265 MG/DAY
     Route: 042
     Dates: start: 20110712
  2. CARBOPLATIN [Suspect]
     Indication: OVARIAN CANCER
     Dosage: 626 MG/DAY
     Route: 042
     Dates: start: 20110712

REACTIONS (4)
  - SWELLING [None]
  - PRURITUS [None]
  - PHLEBITIS [None]
  - THROMBOSIS [None]
